FAERS Safety Report 6065219-5 (Version None)
Quarter: 2009Q1

REPORT INFORMATION
  Report Type: 
  Country: None (occurrence: None)
  Receive Date: 20090204
  Receipt Date: 20090126
  Transmission Date: 20090719
  Serious: Yes (Hospitalization, Other)
  Sender: FDA-Public Use
  Company Number: PHBS2009IT00683

PATIENT
  Sex: Female

DRUGS (6)
  1. METOPROLOL TARTRATE [Suspect]
  2. ACETYLSALICYLIC ACID SRT [Concomitant]
  3. ENOXAPARIN SODIUM [Concomitant]
  4. FOLIC ACID [Concomitant]
  5. FERRUM [Concomitant]
  6. NITRATES [Concomitant]

REACTIONS (2)
  - DRUG EXPOSURE DURING PREGNANCY [None]
  - PREMATURE BABY [None]
